FAERS Safety Report 4639129-1 (Version None)
Quarter: 2005Q2

REPORT INFORMATION
  Report Type: 
  Country: None (occurrence: None)
  Receive Date: 20050419
  Receipt Date: 20050414
  Transmission Date: 20051028
  Serious: Yes (Other)
  Sender: FDA-Public Use
  Company Number: PHNU2005DE01641

PATIENT

DRUGS (2)
  1. ERGENYL CHRONO [Concomitant]
     Dates: end: 20050413
  2. LEPONEX / CLOZARIL (CLOZAPINE) [Suspect]
     Dosage: UNK, UNK
     Route: 048
     Dates: start: 20050301, end: 20050413

REACTIONS (3)
  - CHOLECYSTITIS [None]
  - LIPASE INCREASED [None]
  - ULTRASOUND SCAN ABNORMAL [None]
